FAERS Safety Report 14026325 (Version 1)
Quarter: 2017Q3

REPORT INFORMATION
  Report Type: Report from Study
  Country: None (occurrence: AR)
  Receive Date: 20170929
  Receipt Date: 20170929
  Transmission Date: 20171128
  Serious: Yes (Other)
  Sender: FDA-Public Use
  Company Number: AR-ABBVIE-17K-007-2114778-00

PATIENT
  Sex: Male

DRUGS (1)
  1. HUMIRA [Suspect]
     Active Substance: ADALIMUMAB
     Indication: COLITIS ULCERATIVE
     Route: 058
     Dates: start: 20170805, end: 201709

REACTIONS (4)
  - Small intestine operation [Unknown]
  - Anorectal disorder [Recovering/Resolving]
  - Drug ineffective [Unknown]
  - Colectomy [Unknown]

NARRATIVE: CASE EVENT DATE: 2017
